FAERS Safety Report 6676604-2 (Version None)
Quarter: 2010Q2

REPORT INFORMATION
  Report Type: 
  Country: None (occurrence: None)
  Receive Date: 20100412
  Receipt Date: 20100306
  Transmission Date: 20101027
  Serious: Yes (Hospitalization)
  Sender: FDA-Public Use
  Company Number: PHHY2010US20649

PATIENT
  Age: 21 Year
  Sex: Female

DRUGS (5)
  1. MYFORTIC [Suspect]
     Dosage: 720 MG DAILY
     Dates: start: 20071111
  2. PROGRAF [Concomitant]
     Indication: IMMUNOSUPPRESSION
     Dosage: 10 MG DAILY
     Route: 048
     Dates: start: 20051009
  3. AMBIEN [Concomitant]
     Indication: INSOMNIA
     Dosage: 10MG DAILY
     Route: 048
     Dates: start: 20050115
  4. PRAVACHOL [Concomitant]
     Indication: BLOOD CHOLESTEROL INCREASED
     Dosage: 40 MG DAILY
     Route: 048
     Dates: start: 20080410
  5. ACYCLOVIR [Concomitant]
     Indication: GRAFT VERSUS HOST DISEASE
     Dosage: 200 MG AS NEEDED
     Dates: start: 20090712

REACTIONS (2)
  - HEADACHE [None]
  - LUMBAR PUNCTURE [None]
